FAERS Safety Report 17358527 (Version 1)
Quarter: 2020Q1

REPORT INFORMATION
  Report Type: Spontaneous
  Country: US (occurrence: US)
  Receive Date: 20200201
  Receipt Date: 20200201
  Transmission Date: 20200409
  Serious: No
  Sender: FDA-Public Use
  Company Number: US-BAYER-2020-017119

PATIENT
  Sex: Female

DRUGS (1)
  1. GADOBUTROL. [Suspect]
     Active Substance: GADOBUTROL

REACTIONS (1)
  - Adverse event [None]
